FAERS Safety Report 13387593 (Version 1)
Quarter: 2017Q1

REPORT INFORMATION
  Report Type: Spontaneous
  Country: US (occurrence: US)
  Receive Date: 20170330
  Receipt Date: 20170330
  Transmission Date: 20170429
  Serious: No
  Sender: FDA-Public Use
  Company Number: US-MYLANLABS-2016M1059460

PATIENT
  Age: 54 Year
  Sex: Female
  Weight: 47.17 kg

DRUGS (1)
  1. ESTRADIOL TRANSDERMAL SYSTEM [Suspect]
     Active Substance: ESTRADIOL
     Indication: HOT FLUSH
     Dosage: 0.0375 MG, QD, CHANGE WEEKLY
     Route: 062
     Dates: start: 20161110

REACTIONS (1)
  - Drug ineffective [Not Recovered/Not Resolved]

NARRATIVE: CASE EVENT DATE: 20161226
